FAERS Safety Report 4682493-8 (Version None)
Quarter: 2005Q2

REPORT INFORMATION
  Report Type: 
  Country: None (occurrence: None)
  Receive Date: 20050602
  Receipt Date: 20050412
  Transmission Date: 20051028
  Serious: No
  Sender: FDA-Public Use
  Company Number: USA050495494

PATIENT
  Age: 47 Year
  Sex: Male

DRUGS (4)
  1. CYMBALTA [Suspect]
     Indication: DEPRESSION
     Dosage: 60 MG DAY
     Dates: start: 20050301
  2. METADATE (METHYLPHENIDATE HYDROCHLORIDE) [Concomitant]
  3. CATAPRES [Concomitant]
  4. MORPHINE [Concomitant]

REACTIONS (3)
  - DYSARTHRIA [None]
  - FATIGUE [None]
  - SOMNOLENCE [None]
